FAERS Safety Report 10650399 (Version 1)
Quarter: 2014Q4

REPORT INFORMATION
  Report Type: Spontaneous
  Country: US (occurrence: US)
  Receive Date: 20141213
  Receipt Date: 20141213
  Transmission Date: 20150529
  Serious: No
  Sender: FDA-Public Use
  Company Number: US-BAUSCH-SYM-2014-24442

PATIENT
  Sex: Female

DRUGS (1)
  1. XENAZINE [Suspect]
     Active Substance: TETRABENAZINE
     Indication: HUNTINGTON^S DISEASE
     Dosage: HALF-TABLET TWICE DAILY
     Route: 048
     Dates: start: 20140730

REACTIONS (4)
  - Somnolence [Unknown]
  - Movement disorder [Unknown]
  - Conversion disorder [Unknown]
  - Medication error [Unknown]

NARRATIVE: CASE EVENT DATE: 2014
